FAERS Safety Report 6378771-7 (Version None)
Quarter: 2009Q3

REPORT INFORMATION
  Report Type: 
  Country: None (occurrence: None)
  Receive Date: 20090928
  Receipt Date: 20090923
  Transmission Date: 20100115
  Serious: Yes (Hospitalization, Other)
  Sender: FDA-Public Use
  Company Number: FR-BRISTOL-MYERS SQUIBB COMPANY-14792683

PATIENT
  Age: 40 Year
  Sex: Male

DRUGS (3)
  1. REYATAZ [Suspect]
     Indication: HIV INFECTION
     Dosage: 1 CAPS
     Dates: start: 20060301
  2. NORVIR [Suspect]
     Dosage: 1 TABLET
     Dates: start: 20060301
  3. KIVEXA [Suspect]
     Dosage: 1DF=1 TABLET
     Dates: start: 20060301

REACTIONS (2)
  - RENAL COLIC [None]
  - SIGMOIDITIS [None]
